FAERS Safety Report 19510501 (Version 3)
Quarter: 2021Q4

REPORT INFORMATION
  Report Type: Report from Study
  Country: BR (occurrence: BR)
  Receive Date: 20210708
  Receipt Date: 20211201
  Transmission Date: 20220303
  Serious: Yes (Hospitalization, Other)
  Sender: FDA-Public Use
  Company Number: BR-JNJFOC-20210709357

PATIENT
  Age: 26 Year
  Sex: Male
  Weight: 47 kg

DRUGS (1)
  1. REMICADE [Suspect]
     Active Substance: INFLIXIMAB
     Indication: Crohn^s disease
     Dosage: WEEKS 0, 2 AND 6, AND EVERY 12 WEEKS
     Route: 042
     Dates: start: 20210525, end: 20210608

REACTIONS (3)
  - Tuberculosis [Unknown]
  - Off label use [Unknown]
  - Product use issue [Unknown]

NARRATIVE: CASE EVENT DATE: 20210501
